FAERS Safety Report 8796954 (Version 3)
Quarter: 2012Q4

REPORT INFORMATION
  Report Type: 
  Country: US (occurrence: US)
  Receive Date: 20120919
  Receipt Date: 20121228
  Transmission Date: 20130627
  Serious: Yes (Hospitalization)
  Sender: FDA-Public Use
  Company Number: US-ASTRAZENECA-2012SE72285

PATIENT
  Age: 69 Year
  Sex: Female
  Weight: 114.5 kg

DRUGS (14)
  1. NEXIUM [Suspect]
     Indication: GASTRITIS PROPHYLAXIS
     Route: 048
     Dates: start: 20110627, end: 20120730
  2. NAPROXEN [Suspect]
     Indication: OSTEOARTHRITIS
     Route: 048
     Dates: start: 20110722, end: 20120627
  3. NAPROXEN [Suspect]
     Indication: RHEUMATOID ARTHRITIS
     Route: 048
     Dates: start: 20110722, end: 20120627
  4. ACTOS [Concomitant]
     Indication: DIABETES MELLITUS
     Route: 048
     Dates: start: 199811
  5. GLIMEPIRIDE [Concomitant]
     Indication: DIABETES MELLITUS
     Route: 048
     Dates: start: 199909
  6. CALCIUM [Concomitant]
     Indication: MINERAL SUPPLEMENTATION
     Route: 048
     Dates: start: 200904
  7. METFORMIN [Concomitant]
     Indication: DIABETES MELLITUS
     Dates: start: 199008
  8. LOTREL [Concomitant]
     Indication: HYPERTENSION
     Dosage: DAILY
     Route: 048
     Dates: start: 200608
  9. SYNTHROID [Concomitant]
     Indication: HYPOTHYROIDISM
     Route: 048
     Dates: start: 199610
  10. DIOVAN [Concomitant]
     Indication: HYPERTENSION
     Route: 048
     Dates: start: 200607
  11. PLAVIX [Concomitant]
     Indication: PERIPHERAL VASCULAR DISORDER
     Route: 048
     Dates: start: 201010
  12. PERCOCET [Concomitant]
     Indication: OSTEOARTHRITIS
     Dosage: AS NEEDED
     Route: 048
     Dates: start: 20111024
  13. HYDROCHLOROTHIAZIDE [Concomitant]
     Indication: HYPERTENSION
     Route: 048
     Dates: start: 201012
  14. ZOCOR [Concomitant]
     Indication: HYPERCHOLESTEROLAEMIA
     Route: 048
     Dates: start: 199904

REACTIONS (2)
  - Peripheral arterial occlusive disease [Recovered/Resolved]
  - Anaemia [Recovered/Resolved]
